FAERS Safety Report 16054911 (Version 1)
Quarter: 2019Q1

REPORT INFORMATION
  Report Type: Spontaneous
  Country: GB (occurrence: GB)
  Receive Date: 20190310
  Receipt Date: 20190310
  Transmission Date: 20190418
  Serious: Yes (Hospitalization)
  Sender: FDA-Public Use
  Company Number: GB-ACCORD-111744

PATIENT
  Age: 85 Year
  Sex: Female
  Weight: 55 kg

DRUGS (8)
  1. SALBUTAMOL [Concomitant]
     Active Substance: ALBUTEROL
  2. IRON [Concomitant]
     Active Substance: IRON
  3. TIOTROPIUM/TIOTROPIUM BROMIDE [Concomitant]
  4. FOSTAIR [Concomitant]
     Active Substance: BECLOMETHASONE\FORMOTEROL
  5. INDAPAMIDE. [Concomitant]
     Active Substance: INDAPAMIDE
  6. FUROSEMIDE. [Suspect]
     Active Substance: FUROSEMIDE
     Indication: PULMONARY OEDEMA
     Dosage: MORNING
     Route: 048
     Dates: start: 20180918, end: 20180925
  7. RABEPRAZOLE/RABEPRAZOLE SODIUM [Concomitant]
  8. FELODIPINE. [Concomitant]
     Active Substance: FELODIPINE

REACTIONS (1)
  - Blood electrolytes decreased [Not Recovered/Not Resolved]
